FAERS Safety Report 6214222-0 (Version None)
Quarter: 2009Q2

REPORT INFORMATION
  Report Type: 
  Country: None (occurrence: None)
  Receive Date: 20090602
  Receipt Date: 20090526
  Transmission Date: 20091009
  Serious: Yes (Death, Hospitalization, Disabling)
  Sender: FDA-Public Use
  Company Number: 2009JP001152

PATIENT
  Age: 63 Year
  Sex: Female
  Weight: 60 kg

DRUGS (2)
  1. PROGRAF [Suspect]
     Indication: LIVER TRANSPLANT
     Dosage: 0.3 MG, BID, 2 MG/D
     Dates: end: 20080123
  2. PROGRAF [Suspect]
     Indication: LIVER TRANSPLANT
     Dosage: 0.3 MG, BID, 2 MG/D
     Dates: start: 20070820

REACTIONS (9)
  - CARDIAC FAILURE ACUTE [None]
  - CARDIOMEGALY [None]
  - CARDIOMYOPATHY [None]
  - HEPATORENAL SYNDROME [None]
  - INFECTION [None]
  - MITRAL VALVE INCOMPETENCE [None]
  - PLEURAL EFFUSION [None]
  - RENAL FAILURE CHRONIC [None]
  - SEPSIS [None]
